FAERS Safety Report 5084364-4 (Version None)
Quarter: 2006Q3

REPORT INFORMATION
  Report Type: 
  Country: None (occurrence: None)
  Receive Date: 20060817
  Receipt Date: 20060817
  Transmission Date: 20061208
  Serious: Yes (Other)
  Sender: FDA-Public Use
  Company Number: None

PATIENT
  Age: 47 Year
  Sex: Male
  Weight: 97.0698 kg

DRUGS (2)
  1. FLUOXETINE [Suspect]
     Indication: ANXIETY
     Dosage: 20MG 1QD  APRROX 9 MONTHS
     Dates: start: 20020201, end: 20020927
  2. FLUOXETINE [Suspect]
     Indication: DEPRESSION
     Dosage: 20MG 1QD  APRROX 9 MONTHS
     Dates: start: 20020201, end: 20020927

REACTIONS (3)
  - PHARMACEUTICAL PRODUCT COMPLAINT [None]
  - STOMACH DISCOMFORT [None]
  - TINEA CRURIS [None]
